FAERS Safety Report 7971163-6 (Version None)
Quarter: 2011Q4

REPORT INFORMATION
  Report Type: 
  Country: None (occurrence: None)
  Receive Date: 20111212
  Receipt Date: 20111207
  Transmission Date: 20120403
  Serious: Yes (Other)
  Sender: FDA-Public Use
  Company Number: US-BAYER-2011-117972

PATIENT
  Age: 73 Year
  Sex: Female

DRUGS (8)
  1. SYNTHROID [Suspect]
  2. VITAMIN B-12 [Suspect]
  3. ZOCOR [Suspect]
  4. VITAMIN D [Suspect]
  5. PLAVIX [Suspect]
  6. ASPIRIN [Suspect]
  7. POTASSIUM CHLORIDE [Suspect]
  8. PEPCID [Suspect]

REACTIONS (2)
  - DYSPNOEA [None]
  - BLOOD COUNT ABNORMAL [None]
